FAERS Safety Report 5418951-8 (Version None)
Quarter: 2007Q3

REPORT INFORMATION
  Report Type: 
  Country: None (occurrence: None)
  Receive Date: 20070817
  Receipt Date: 20070807
  Transmission Date: 20080115
  Serious: Yes (Hospitalization)
  Sender: FDA-Public Use
  Company Number: FR-PFIZER INC-2007065901

PATIENT
  Sex: Female

DRUGS (8)
  1. ALDACTONE [Suspect]
     Indication: CARDIAC FAILURE
     Route: 048
  2. DIGOXIN [Suspect]
     Indication: ATRIAL FIBRILLATION
     Dosage: TEXT:1 DF ; 1 DF
     Route: 048
  3. COZAAR [Suspect]
     Indication: HYPERTENSION
     Route: 048
  4. LASIX [Suspect]
     Indication: CARDIAC FAILURE
     Route: 048
  5. CARDENSIEL [Suspect]
     Indication: HYPERTENSION
     Dosage: DAILY DOSE:7.5MG
     Route: 048
  6. COUMADIN [Concomitant]
     Indication: HYPERTENSION
     Route: 048
  7. CALCIDOSE [Concomitant]
  8. OPTRUMA [Concomitant]

REACTIONS (2)
  - BRADYCARDIA [None]
  - CARDIOACTIVE DRUG LEVEL INCREASED [None]
